FAERS Safety Report 6610935-7 (Version None)
Quarter: 2010Q1

REPORT INFORMATION
  Report Type: 
  Country: None (occurrence: None)
  Receive Date: 20100222
  Receipt Date: 20100208
  Transmission Date: 20100710
  Serious: Yes (Death, Hospitalization)
  Sender: FDA-Public Use
  Company Number: 2009AC000256

PATIENT
  Age: 70 Year
  Sex: Female
  Weight: 63.05 kg

DRUGS (23)
  1. DIGOXIN [Suspect]
     Indication: ATRIAL FIBRILLATION
     Dosage: 0.125 MG; QD; PO
     Route: 048
     Dates: start: 20030101
  2. MEBARAL [Concomitant]
  3. ZOCOR [Concomitant]
  4. DEPAKOTE [Concomitant]
  5. AMIODARONE HCL [Concomitant]
  6. LEVOXYL [Concomitant]
  7. FUROSEMIDE [Concomitant]
  8. NITROGLYCERIN [Concomitant]
  9. ENTERIC ASPIRIN [Concomitant]
  10. POTASSIUM ELIXIR [Concomitant]
  11. COZAAR [Concomitant]
  12. LASIX [Concomitant]
  13. DEPAKOTE [Concomitant]
  14. COZAAR [Concomitant]
  15. LEVOTHYROXINE SODIUM [Concomitant]
  16. NITROGLYCERIN [Concomitant]
  17. FUROSEMIDE [Concomitant]
  18. DEPAKOTE [Concomitant]
  19. POTASSIUM [Concomitant]
  20. MEBRAL [Concomitant]
  21. ZOCOR [Concomitant]
  22. LEVOXYL [Concomitant]
  23. AMIODARONE HCL [Concomitant]

REACTIONS (34)
  - ANAEMIA [None]
  - ANHEDONIA [None]
  - ANXIETY [None]
  - AORTIC ARTERIOSCLEROSIS [None]
  - ARTERIOSCLEROSIS [None]
  - ATRIAL FIBRILLATION [None]
  - BASAL CELL CARCINOMA [None]
  - CARDIAC FAILURE CONGESTIVE [None]
  - CONVULSION [None]
  - CORONARY ARTERY DISEASE [None]
  - COUGH [None]
  - DEEP VEIN THROMBOSIS [None]
  - DIARRHOEA [None]
  - DYSPNOEA [None]
  - ECONOMIC PROBLEM [None]
  - FATIGUE [None]
  - HEART RATE INCREASED [None]
  - HEART RATE IRREGULAR [None]
  - HYPERLIPIDAEMIA [None]
  - HYPERTENSION [None]
  - IRRITABILITY [None]
  - LEFT ATRIAL DILATATION [None]
  - LEFT VENTRICULAR DYSFUNCTION [None]
  - MITRAL VALVE INCOMPETENCE [None]
  - MULTIPLE INJURIES [None]
  - OEDEMA PERIPHERAL [None]
  - PAIN [None]
  - PAIN IN EXTREMITY [None]
  - PALPITATIONS [None]
  - PERIPHERAL VASCULAR DISORDER [None]
  - POSTNASAL DRIP [None]
  - PULMONARY EMBOLISM [None]
  - RENAL FAILURE ACUTE [None]
  - VOMITING [None]
